FAERS Safety Report 5751856-1 (Version None)
Quarter: 2008Q2

REPORT INFORMATION
  Report Type: 
  Country: None (occurrence: None)
  Receive Date: 20080527
  Receipt Date: 20080513
  Transmission Date: 20081010
  Serious: Yes (Hospitalization, Other)
  Sender: FDA-Public Use
  Company Number: 2008-01509

PATIENT
  Age: 62 Year
  Sex: Male
  Weight: 102.9 kg

DRUGS (20)
  1. VELCADE [Suspect]
     Indication: MANTLE CELL LYMPHOMA
     Dosage: 1.3 MG/M2,  INTRAVENOUS
     Route: 042
     Dates: start: 20080416, end: 20080419
  2. CYCLOPHOSPHAMIDE [Suspect]
     Indication: MANTLE CELL LYMPHOMA
     Dosage: 660 MG,  INTRAVENOUS
     Route: 042
     Dates: start: 20080416, end: 20080418
  3. RITUXAN [Suspect]
     Indication: MANTLE CELL LYMPHOMA
     Dosage: 825 MG, INTRAVENOUS
     Route: 042
     Dates: start: 20080416, end: 20080416
  4. DOXORUBICIN HCL [Suspect]
     Indication: MANTLE CELL LYMPHOMA
     Dosage: 55 MG,   INTRAVENOUS
     Route: 042
     Dates: start: 20080416, end: 20080417
  5. DEXAMETHASONE TAB [Suspect]
     Indication: MANTLE CELL LYMPHOMA
     Dosage: 40 MG, ORAL
     Route: 048
     Dates: start: 20080416, end: 20080419
  6. VINCRISTINE [Suspect]
     Indication: MANTLE CELL LYMPHOMA
     Dosage: 1 MG,  INTRAVENOUS
     Route: 042
     Dates: start: 20080418, end: 20080418
  7. ACYCLOVIR (ACICLOVIR) TABLET [Concomitant]
  8. INSULIN GLARGINE (INSULIN GLARGINE) [Concomitant]
  9. SULFAMETHOXAZOLE W/TRIMETHOPRIM (SULFAMETHOXAZOLE, TRIMETHOPRIM) TABLE [Concomitant]
  10. ACETAMINOPHEN [Concomitant]
  11. HYDROCODONE W/ACETAMINOPHEN (PARACETAMOL, HYDROCODONE BITARTRATE) TABL [Concomitant]
  12. INSULIN, REGULAR (INSULIN) INJECTION [Concomitant]
  13. INSULIN HUMAN (INSULIN HUMAN) INJECTION [Concomitant]
  14. PROCHLORPERAZINE MALEATE (PROCHLORPERAZINE MALEATE) TABLET [Concomitant]
  15. DIFLUCAN [Concomitant]
  16. PROTONIX [Concomitant]
  17. HEPARIN LOCK FLUSH (HEPARIN SODIUM) SOLUTION [Concomitant]
  18. LORAZEPAM [Concomitant]
  19. VICODIN [Concomitant]
  20. HYDROCHLOROTHIAZIDE [Concomitant]

REACTIONS (1)
  - OESOPHAGITIS [None]
